FAERS Safety Report 5842844-5 (Version None)
Quarter: 2008Q3

REPORT INFORMATION
  Report Type: 
  Country: None (occurrence: None)
  Receive Date: 20080731
  Receipt Date: 20080622
  Transmission Date: 20090109
  Serious: No
  Sender: FDA-Public Use
  Company Number: US200806004954

PATIENT
  Age: 71 Year
  Sex: Female
  Weight: 95.2 kg

DRUGS (11)
  1. BYETTA [Suspect]
     Indication: TYPE 2 DIABETES MELLITUS
     Dosage: 5 UG, 2/D, SUBCUTANEOUS ; 10 UG, 2/D, SUBCUTANEOUS
     Route: 058
     Dates: start: 20080501, end: 20080611
  2. BYETTA [Suspect]
     Indication: TYPE 2 DIABETES MELLITUS
     Dosage: 5 UG, 2/D, SUBCUTANEOUS ; 10 UG, 2/D, SUBCUTANEOUS
     Route: 058
     Dates: start: 20080612
  3. GLIPIZIDE [Concomitant]
  4. FUROSEMIDE (FUROSEMIDE) [Concomitant]
  5. AVAPRO [Concomitant]
  6. LOVASTATIN [Concomitant]
  7. VERAPAMIL [Concomitant]
  8. MULTIVITAMIN [Concomitant]
  9. CALCIUM WITH VITAMIN D (CALCIUM PHOSPHATE, CALCIUM SODIUM LACTATE, ERG [Concomitant]
  10. PRESERVISION LUTEIN EYE VITA.+MIN.SUP.SOFTG. (ASCORBIC ACID, CUPRIC OX [Concomitant]
  11. ASPIRIN /USA/ (ACETYLSALICYLIC ACID) [Concomitant]

REACTIONS (1)
  - HEART RATE IRREGULAR [None]
